FAERS Safety Report 8268266-8 (Version None)
Quarter: 2012Q2

REPORT INFORMATION
  Report Type: 
  Country: None (occurrence: None)
  Receive Date: 20120409
  Receipt Date: 20120330
  Transmission Date: 20120825
  Serious: Yes (Hospitalization)
  Sender: FDA-Public Use
  Company Number: PHHO2012US005183

PATIENT
  Sex: Male
  Weight: 100.7 kg

DRUGS (4)
  1. TEMOZOLOMIDE [Concomitant]
     Indication: CHEMOTHERAPY
     Dosage: 0-200 MG/M^2
     Dates: start: 20120101, end: 20120123
  2. TAXOL [Suspect]
     Indication: CHEMOTHERAPY
     Dosage: UNK
     Dates: start: 20120329, end: 20120329
  3. TACROLIMUS [Suspect]
     Indication: LIVER TRANSPLANT
     Dosage: 1 MG, BID
     Dates: start: 20100416
  4. CARBOPLATIN [Suspect]
     Indication: CHEMOTHERAPY
     Dosage: UNK
     Dates: start: 20120329, end: 20120329

REACTIONS (6)
  - POST PROCEDURAL COMPLICATION [None]
  - METASTATIC MALIGNANT MELANOMA [None]
  - RIB FRACTURE [None]
  - PULSELESS ELECTRICAL ACTIVITY [None]
  - CARDIAC ARREST [None]
  - ENDOTRACHEAL INTUBATION COMPLICATION [None]
